FAERS Safety Report 8287123-4 (Version None)
Quarter: 2012Q2

REPORT INFORMATION
  Report Type: 
  Country: None (occurrence: None)
  Receive Date: 20120416
  Receipt Date: 20120416
  Transmission Date: 20120825
  Serious: Yes (Death, Hospitalization)
  Sender: FDA-Public Use
  Company Number: US-TEVA-192341USA

PATIENT
  Age: 21 Year
  Sex: Female

DRUGS (1)
  1. NICOTINE [Suspect]

REACTIONS (3)
  - SUPERIOR SAGITTAL SINUS THROMBOSIS [None]
  - VENOUS THROMBOSIS [None]
  - CEREBRAL INFARCTION [None]
